FAERS Safety Report 24638392 (Version 1)
Quarter: 2024Q4

REPORT INFORMATION
  Report Type: Spontaneous
  Country: US (occurrence: None)
  Receive Date: 20241119
  Receipt Date: 20241119
  Transmission Date: 20250115
  Serious: Yes (Hospitalization)
  Sender: Public
  Company Number: None

PATIENT
  Age: 80 Year
  Sex: Male

DRUGS (1)
  1. APIXABAN [Suspect]
     Active Substance: APIXABAN
     Dosage: FREQUENCY : TWICE A DAY;?
     Route: 048

REACTIONS (7)
  - Fall [None]
  - Rib fracture [None]
  - Head injury [None]
  - Alcohol use [None]
  - Subdural haematoma [None]
  - Spinal compression fracture [None]
  - Therapy cessation [None]

NARRATIVE: CASE EVENT DATE: 20240505
